FAERS Safety Report 9270764 (Version 4)
Quarter: 2013Q3

REPORT INFORMATION
  Report Type: Spontaneous
  Country: US (occurrence: US)
  Receive Date: 20130506
  Receipt Date: 20130830
  Transmission Date: 20140515
  Serious: Yes (Other)
  Sender: FDA-Public Use
  Company Number: US-009507513-1305USA001258

PATIENT
  Sex: Female
  Weight: 48.53 kg

DRUGS (2)
  1. INTRONA [Suspect]
     Indication: HEPATITIS C
     Dosage: , Q3W
     Dates: start: 19940429, end: 19940624
  2. MELOXICAM [Concomitant]
     Indication: ARTHRITIS
     Dosage: 15 MG, QD

REACTIONS (8)
  - Hyperthyroidism [Recovered/Resolved]
  - Osteopenia [Unknown]
  - Osteoporosis [Unknown]
  - Rheumatoid arthritis [Unknown]
  - Hypertension [Unknown]
  - Weight decreased [Unknown]
  - Weight decreased [Unknown]
  - Diarrhoea [Unknown]
